FAERS Safety Report 4579905-7 (Version None)
Quarter: 2005Q1

REPORT INFORMATION
  Report Type: 
  Country: None (occurrence: None)
  Receive Date: 20050210
  Receipt Date: 20050201
  Transmission Date: 20050727
  Serious: Yes (Other)
  Sender: FDA-Public Use
  Company Number: K200500170

PATIENT
  Age: 75 Year
  Sex: Male

DRUGS (8)
  1. ALTACE [Suspect]
     Indication: ILL-DEFINED DISORDER
     Dosage: 2.5 MG, QD, ORAL
     Route: 048
  2. ATENOLOL [Suspect]
     Indication: ILL-DEFINED DISORDER
     Dosage: 25 MG, QD, ORAL
     Route: 048
  3. LIPITOR [Suspect]
     Indication: HYPERCHOLESTEROLAEMIA
     Dosage: 80 MG, QD
  4. NEURONTIN [Suspect]
     Indication: TREMOR
     Dosage: 300 MG, TID,ORAL
     Route: 048
  5. GLIPIZIDE (GLIPIZIDE) TABLET, 10MG [Suspect]
     Indication: ILL-DEFINED DISORDER
     Dosage: 10 MG BID, ORAL
     Route: 048
  6. PREVACID [Suspect]
     Indication: ILL-DEFINED DISORDER
     Dosage: 30 MG, BID, ORAL
     Route: 048
  7. NITROTAB (GLYCERYL TRINITRATE) [Concomitant]
  8. PLAVIX [Concomitant]

REACTIONS (5)
  - CARDIAC DISORDER [None]
  - DIABETES MELLITUS [None]
  - MYOCARDIAL INFARCTION [None]
  - NERVOUS SYSTEM DISORDER [None]
  - TREMOR [None]
